FAERS Safety Report 10089289 (Version 2)
Quarter: 2014Q2

REPORT INFORMATION
  Report Type: Spontaneous
  Country: US (occurrence: US)
  Receive Date: 20140421
  Receipt Date: 20140421
  Transmission Date: 20141212
  Serious: No
  Sender: FDA-Public Use
  Company Number: US-DRREDDYS-USA/USA/14/0038589

PATIENT
  Age: 18 Year
  Sex: Female

DRUGS (3)
  1. ZENATANE [Suspect]
     Indication: ACNE
     Route: 065
     Dates: start: 20131022
  2. ZENATANE [Suspect]
     Route: 065
     Dates: start: 20131230, end: 20140227
  3. ORTHO TRI-CYCLEN LO [Concomitant]
     Indication: CONTRACEPTION
     Route: 065

REACTIONS (5)
  - Headache [Unknown]
  - Abdominal pain upper [Unknown]
  - Dry eye [Unknown]
  - Lip dry [Unknown]
  - Dry skin [Unknown]
